FAERS Safety Report 8525616-2 (Version None)
Quarter: 2012Q3

REPORT INFORMATION
  Report Type: 
  Country: None (occurrence: None)
  Receive Date: 20120710
  Receipt Date: 20120608
  Transmission Date: 20120928
  Serious: Yes (Other)
  Sender: FDA-Public Use
  Company Number: SPI201200149

PATIENT

DRUGS (1)
  1. RESCULA [Suspect]
     Dosage: , OPHTHALMIC
     Route: 047

REACTIONS (1)
  - CONVULSION [None]
